FAERS Safety Report 4343069-5 (Version None)
Quarter: 2004Q2

REPORT INFORMATION
  Report Type: 
  Country: None (occurrence: None)
  Receive Date: 20040421
  Receipt Date: 20040415
  Transmission Date: 20050107
  Serious: Yes (Hospitalization)
  Sender: FDA-Public Use
  Company Number: US-BRISTOL-MYERS SQUIBB COMPANY-12561411

PATIENT
  Age: 13 Year
  Sex: Female
  Weight: 32 kg

DRUGS (3)
  1. SUSTIVA [Suspect]
     Indication: HIV INFECTION
     Route: 048
     Dates: start: 20030101
  2. COMBIVIR [Concomitant]
     Dosage: LAMIVUDINE 150 MG AND ZIDOVUDINE 300 MG
     Dates: start: 19980301
  3. PENTAMIDINE AEROSOL [Concomitant]
     Dosage: ONCE PER MONTH
     Route: 055

REACTIONS (1)
  - IMPAIRED GASTRIC EMPTYING [None]
